FAERS Safety Report 9835286 (Version 1)
Quarter: 2014Q1

REPORT INFORMATION
  Report Type: Spontaneous
  Country: US (occurrence: US)
  Receive Date: 20140122
  Receipt Date: 20140122
  Transmission Date: 20141002
  Serious: No
  Sender: FDA-Public Use
  Company Number: US-BRISTOL-MYERS SQUIBB COMPANY-19919133

PATIENT
  Age: 59 Year
  Sex: Male
  Weight: 99.77 kg

DRUGS (1)
  1. ELIQUIS [Suspect]
     Indication: MYOCARDIAL INFARCTION

REACTIONS (1)
  - Drug dose omission [Unknown]
